FAERS Safety Report 22107414 (Version 1)
Quarter: 2023Q1

REPORT INFORMATION
  Report Type: Spontaneous
  Country: None (occurrence: US)
  Receive Date: 20230317
  Receipt Date: 20230317
  Transmission Date: 20230418
  Serious: Yes (Hospitalization)
  Sender: FDA-Public Use
  Company Number: US-Jiangsu Hengrui Medicine Co., Ltd.-2139181

PATIENT
  Age: 68 Year
  Sex: Female

DRUGS (2)
  1. CYCLOPHOSPHAMIDE [Suspect]
     Active Substance: CYCLOPHOSPHAMIDE
     Indication: Invasive ductal breast carcinoma
  2. DOXORUBICIN [Suspect]
     Active Substance: DOXORUBICIN

REACTIONS (2)
  - Device electrical impedance issue [Recovered/Resolved]
  - Device pacing issue [Recovered/Resolved]
